FAERS Safety Report 5524812-6 (Version None)
Quarter: 2007Q4

REPORT INFORMATION
  Report Type: 
  Country: None (occurrence: None)
  Receive Date: 20071116
  Receipt Date: 20071106
  Transmission Date: 20080405
  Serious: Yes (Other)
  Sender: FDA-Public Use
  Company Number: CHNY2007DE03694

PATIENT
  Sex: Male

DRUGS (1)
  1. OTRIVIN [Suspect]
     Dosage: NASAL
     Route: 045

REACTIONS (2)
  - INTENTIONAL DRUG MISUSE [None]
  - NO ADVERSE DRUG REACTION [None]
